FAERS Safety Report 9349160 (Version 2)
Quarter: 2013Q3

REPORT INFORMATION
  Report Type: Spontaneous
  Country: US (occurrence: US)
  Receive Date: 20130614
  Receipt Date: 20130927
  Transmission Date: 20140515
  Serious: Yes (Other)
  Sender: FDA-Public Use
  Company Number: US-BAYER-2013-072243

PATIENT
  Age: 48 Year
  Sex: Female
  Weight: 119.73 kg

DRUGS (10)
  1. YAZ [Suspect]
     Indication: CONTRACEPTION
  2. ZYRTEC [Concomitant]
     Dosage: 10 MG, 1 ONCE DAILY
     Route: 048
  3. TRAZODONE [Concomitant]
  4. FLONASE [Concomitant]
     Dosage: 2 SPRAYS EVERY NIGHT AT BEDTIME
  5. CLONAZEPAM [Concomitant]
  6. DOXYCYCLINE [Concomitant]
  7. AMBIEN [Concomitant]
     Dosage: ? EVERY NIGHT AT BEDTIME AND 1 AS NEEDED
  8. LEXAPRO [Concomitant]
     Dosage: 10 MG, UNK, 1 ONCE DAILY
     Route: 048
  9. SINGULAIR [Concomitant]
     Dosage: 1 ONCE DAILY
     Route: 048
  10. IBUPROFEN [IBUPROFEN] [Concomitant]
     Dosage: 800 MG, TID
     Dates: start: 20120804

REACTIONS (6)
  - Phlebitis [Recovering/Resolving]
  - Thrombophlebitis [Recovering/Resolving]
  - Pain in extremity [Recovering/Resolving]
  - Thrombophlebitis superficial [Recovered/Resolved]
  - Thrombophlebitis superficial [Recovered/Resolved]
  - Intermittent claudication [None]
